FAERS Safety Report 11201796 (Version 1)
Quarter: 2015Q2

REPORT INFORMATION
  Report Type: Spontaneous
  Country: US (occurrence: US)
  Receive Date: 20150619
  Receipt Date: 20150619
  Transmission Date: 20150821
  Serious: Yes (Death)
  Sender: FDA-Public Use
  Company Number: US-HOSPIRA-2899860

PATIENT
  Age: 58 Year
  Sex: Female
  Weight: 90 kg

DRUGS (4)
  1. LIDOCAINE HYDROCHLORIDE. [Suspect]
     Active Substance: LIDOCAINE HYDROCHLORIDE
     Indication: MEDICATION DILUTION
     Dosage: ONCE, LEFT BUTTOCKS
     Route: 030
     Dates: start: 20150602, end: 20150602
  2. CYANOCOBALAMIN. [Suspect]
     Active Substance: CYANOCOBALAMIN
     Indication: FATIGUE
     Dosage: ONCE, FOR A WHILE; INTO LEFT SHOULDER
     Route: 030
     Dates: start: 20150602, end: 20150602
  3. CEFTRIAXONE SODIUM. [Suspect]
     Active Substance: CEFTRIAXONE SODIUM
     Indication: SINUSITIS
     Dosage: ONCE, LEFT BUTTOCKS
     Route: 030
     Dates: start: 20150602, end: 20150602
  4. DEPO-MEDROL [Suspect]
     Active Substance: METHYLPREDNISOLONE ACETATE
     Indication: SINUSITIS
     Dosage: ONCE, RIGHT BUTTOCKS
     Route: 030
     Dates: start: 20150602, end: 20150602

REACTIONS (6)
  - Rash generalised [Fatal]
  - Pruritus [Fatal]
  - Loss of consciousness [Fatal]
  - Sudden visual loss [Fatal]
  - Unresponsive to stimuli [Fatal]
  - Anaphylactic shock [Fatal]

NARRATIVE: CASE EVENT DATE: 20150602
